FAERS Safety Report 20057188 (Version 3)
Quarter: 2023Q1

REPORT INFORMATION
  Report Type: Spontaneous
  Country: JP (occurrence: JP)
  Receive Date: 20211111
  Receipt Date: 20230123
  Transmission Date: 20230418
  Serious: Yes (Life-Threatening, Hospitalization, Other)
  Sender: FDA-Public Use
  Company Number: JP-TAKEDA-2021TJP114242

PATIENT

DRUGS (4)
  1. ZEJULA [Suspect]
     Active Substance: NIRAPARIB
     Indication: Ovarian cancer stage III
     Dosage: 200 MG, QD
     Route: 048
     Dates: start: 20210901, end: 20210914
  2. SITAGLIPTIN [Concomitant]
     Active Substance: SITAGLIPTIN
     Indication: Product used for unknown indication
     Dosage: 50 MG, QD
     Route: 065
     Dates: start: 20210406
  3. SITAGLIPTIN [Concomitant]
     Active Substance: SITAGLIPTIN
     Dosage: 25 MG, QD
     Route: 065
     Dates: start: 20190916
  4. RESCULA [Concomitant]
     Active Substance: UNOPROSTONE ISOPROPYL
     Indication: Product used for unknown indication
     Dosage: UNK UNK, BID
     Route: 047

REACTIONS (24)
  - Pancytopenia [Recovered/Resolved]
  - Vomiting [Recovering/Resolving]
  - Stomatitis [Recovering/Resolving]
  - Mouth haemorrhage [Recovering/Resolving]
  - Conjunctival pallor [Recovering/Resolving]
  - Haemorrhage subcutaneous [Recovering/Resolving]
  - Gastrointestinal wall thickening [Unknown]
  - Decreased appetite [Unknown]
  - Feeding disorder [Unknown]
  - General physical health deterioration [Recovered/Resolved]
  - Inflammation [Unknown]
  - Renal impairment [Unknown]
  - Gait disturbance [Unknown]
  - Haematemesis [Unknown]
  - Myelosuppression [Unknown]
  - Purpura [Unknown]
  - Pain [Unknown]
  - Nausea [Unknown]
  - Dyspnoea [Unknown]
  - Malaise [Unknown]
  - Hypertension [Unknown]
  - Nausea [Unknown]
  - Dyspnoea [Unknown]
  - Asthenia [Unknown]

NARRATIVE: CASE EVENT DATE: 20210914
